FAERS Safety Report 11121752 (Version 5)
Quarter: 2015Q3

REPORT INFORMATION
  Report Type: Spontaneous
  Country: JP (occurrence: JP)
  Receive Date: 20150519
  Receipt Date: 20150731
  Transmission Date: 20151125
  Serious: Yes (Death, Life-Threatening)
  Sender: FDA-Public Use
  Company Number: PHJP2015JP007824

PATIENT
  Age: 59 Year
  Sex: Female

DRUGS (2)
  1. NEORAL [Suspect]
     Active Substance: CYCLOSPORINE
     Indication: TOLOSA-HUNT SYNDROME
     Route: 048
  2. NEORAL [Suspect]
     Active Substance: CYCLOSPORINE
     Indication: PHLEBITIS

REACTIONS (5)
  - Ruptured cerebral aneurysm [Fatal]
  - Condition aggravated [Unknown]
  - Off label use [Unknown]
  - Aspergillus infection [Fatal]
  - Infective aneurysm [Fatal]
